FAERS Safety Report 13164744 (Version 1)
Quarter: 2017Q1

REPORT INFORMATION
  Report Type: Spontaneous
  Country: DE (occurrence: DE)
  Receive Date: 20170130
  Receipt Date: 20170130
  Transmission Date: 20170428
  Serious: Yes (Hospitalization, Other)
  Sender: FDA-Public Use
  Company Number: DE-009507513-1701DEU012295

PATIENT
  Age: 72 Year
  Sex: Female
  Weight: 79 kg

DRUGS (5)
  1. DEXAMETHASONE. [Suspect]
     Active Substance: DEXAMETHASONE
     Indication: DIFFUSE LARGE B-CELL LYMPHOMA RECURRENT
     Dosage: 40 MG, UNKNOWN
     Route: 048
     Dates: start: 20160313, end: 20160318
  2. CISPLATIN. [Suspect]
     Active Substance: CISPLATIN
     Indication: DIFFUSE LARGE B-CELL LYMPHOMA RECURRENT
     Dosage: 180 MG, UNK
     Dates: start: 20160313, end: 20160318
  3. CYTARABINE. [Suspect]
     Active Substance: CYTARABINE
     Indication: DIFFUSE LARGE B-CELL LYMPHOMA RECURRENT
     Dosage: 7200 MG; UNKNOWN
     Dates: start: 20160314, end: 20160318
  4. TEMSIROLIMUS [Suspect]
     Active Substance: TEMSIROLIMUS
     Indication: DIFFUSE LARGE B-CELL LYMPHOMA RECURRENT
     Dosage: 25 MG, DAY 1 AND DAY 8
     Route: 042
     Dates: start: 20160311, end: 20160318
  5. RITUXIMAB [Suspect]
     Active Substance: RITUXIMAB
     Indication: DIFFUSE LARGE B-CELL LYMPHOMA RECURRENT
     Dosage: 675 MG, UNK
     Dates: start: 20160312, end: 20160318

REACTIONS (4)
  - Renal failure [Recovered/Resolved]
  - Neutropenic sepsis [Recovered/Resolved]
  - Atypical pneumonia [Unknown]
  - Condition aggravated [Unknown]

NARRATIVE: CASE EVENT DATE: 201603
